FAERS Safety Report 8815545 (Version 1)
Quarter: 2012Q4

REPORT INFORMATION
  Report Type: 
  Country: US (occurrence: US)
  Receive Date: 20120928
  Receipt Date: 20120928
  Transmission Date: 20130627
  Serious: No
  Sender: FDA-Public Use
  Company Number: US-009507513-1209USA007416

PATIENT
  Sex: Male

DRUGS (4)
  1. MIRALAX [Suspect]
     Indication: PRODUCT USED FOR UNKNOWN INDICATION
     Dosage: UNK, qpm
     Route: 048
  2. FLOMAX (MORNIFLUMATE) [Concomitant]
     Indication: PRODUCT USED FOR UNKNOWN INDICATION
     Dosage: UNK, Unknown
  3. CARDIZEM CD [Concomitant]
     Indication: PRODUCT USED FOR UNKNOWN INDICATION
     Dosage: UNK, Unknown
  4. COUMADIN [Concomitant]
     Indication: THROMBOSIS
     Dosage: UNK, Unknown

REACTIONS (1)
  - Nocturia [Not Recovered/Not Resolved]
